FAERS Safety Report 5169270-9 (Version None)
Quarter: 2006Q4

REPORT INFORMATION
  Report Type: 
  Country: None (occurrence: None)
  Receive Date: 20061127
  Receipt Date: 20061116
  Transmission Date: 20070319
  Serious: Yes (Hospitalization, Other)
  Sender: FDA-Public Use
  Company Number: CH-2006-020330

PATIENT
  Age: 35 Year
  Sex: Male

DRUGS (2)
  1. BETAFERON (INTERFERON BETA - 1B)INJECTION, 250?G [Suspect]
     Indication: MULTIPLE SCLEROSIS
     Dosage: 8 MIU, EVERY 2D, SUBCUTANEOUS
     Route: 058
     Dates: start: 19970101
  2. AVONEX (INTERFERON BETA-1) [Concomitant]

REACTIONS (6)
  - DRUG HYPERSENSITIVITY [None]
  - INFLAMMATION [None]
  - INJECTION SITE ATROPHY [None]
  - INJECTION SITE ERYTHEMA [None]
  - INJECTION SITE NECROSIS [None]
  - INJECTION SITE PAIN [None]
